FAERS Safety Report 5102934-1 (Version None)
Quarter: 2006Q3

REPORT INFORMATION
  Report Type: 
  Country: None (occurrence: None)
  Receive Date: 20060912
  Receipt Date: 20060906
  Transmission Date: 20061208
  Serious: Yes (Hospitalization)
  Sender: FDA-Public Use
  Company Number: BR-BOEHRINGER INGELHEIM PHARMACEUTICALS, INC.-2006-BP-10325BR

PATIENT
  Age: 70 Year
  Sex: Male

DRUGS (4)
  1. SECOTEX [Suspect]
     Indication: BENIGN PROSTATIC HYPERPLASIA
     Route: 048
     Dates: start: 20060801
  2. LOSARTAN POSTASSIUM [Concomitant]
     Indication: HYPERTENSION
  3. DAONIL [Concomitant]
     Indication: DIABETES MELLITUS
  4. OMEPRAZOLE [Concomitant]
     Indication: GASTRITIS

REACTIONS (4)
  - PROSTATIC OPERATION [None]
  - PRURITUS [None]
  - SKIN IRRITATION [None]
  - URINARY TRACT INFECTION [None]
